FAERS Safety Report 9962523 (Version 1)
Quarter: 2014Q1

REPORT INFORMATION
  Report Type: Report from Study
  Country: US (occurrence: US)
  Receive Date: 20140305
  Receipt Date: 20140305
  Transmission Date: 20141002
  Serious: No
  Sender: FDA-Public Use
  Company Number: US-ABBVIE-13P-163-1112989-00

PATIENT
  Age: 53 Year
  Sex: Female
  Weight: 113.05 kg

DRUGS (13)
  1. HUMIRA [Suspect]
     Indication: RHEUMATOID ARTHRITIS
     Route: 058
     Dates: start: 2012
  2. METFORMIN [Concomitant]
     Indication: DIABETES MELLITUS
  3. GLIMIPRIDE [Concomitant]
     Indication: DIABETES MELLITUS
  4. CARVEDILOL [Concomitant]
     Indication: HYPERTENSION
  5. LOSARTAN [Concomitant]
     Indication: HYPERTENSION
  6. PRAVASTATIN [Concomitant]
     Indication: HYPERLIPIDAEMIA
  7. FOLIC ACID [Concomitant]
     Indication: VITAMIN SUPPLEMENTATION
  8. METHOTREXATE [Concomitant]
     Indication: RHEUMATOID ARTHRITIS
  9. HYDROCHLOORTHIAZIDE [Concomitant]
     Indication: FLUID RETENTION
  10. NITROGLYCERIN [Concomitant]
     Indication: MYOCARDIAL INFARCTION
  11. ASPIRIN [Concomitant]
     Indication: CARDIOVASCULAR EVENT PROPHYLAXIS
  12. MVI [Concomitant]
     Indication: SUPPLEMENTATION THERAPY
  13. VITAMIN D [Concomitant]
     Indication: SUPPLEMENTATION THERAPY

REACTIONS (4)
  - Cough [Recovered/Resolved]
  - Gastrooesophageal reflux disease [Recovered/Resolved]
  - Pneumonia [Recovered/Resolved]
  - Pyrexia [Recovered/Resolved]
